FAERS Safety Report 7407132-4 (Version None)
Quarter: 2011Q2

REPORT INFORMATION
  Report Type: 
  Country: None (occurrence: None)
  Receive Date: 20110411
  Receipt Date: 20110407
  Transmission Date: 20111010
  Serious: Yes (Death)
  Sender: FDA-Public Use
  Company Number: ES-ROXANE LABORATORIES, INC.-2011-RO-00476RO

PATIENT
  Age: 78 Year
  Sex: Male

DRUGS (1)
  1. MEGESTROL ACETATE [Suspect]
     Indication: DECREASED APPETITE
     Dosage: 160 MG

REACTIONS (1)
  - ANGIOPATHY [None]
